FAERS Safety Report 9353557 (Version 3)
Quarter: 2014Q1

REPORT INFORMATION
  Report Type: Spontaneous
  Country: US (occurrence: US)
  Receive Date: 20130618
  Receipt Date: 20140205
  Transmission Date: 20141002
  Serious: Yes (Hospitalization)
  Sender: FDA-Public Use
  Company Number: US-BAYER-2013-072671

PATIENT
  Age: 36 Year
  Sex: Female
  Weight: 79.37 kg

DRUGS (4)
  1. MIRENA [Suspect]
     Indication: CONTRACEPTION
     Dosage: 20 MCG/24HR, CONT
     Route: 015
     Dates: start: 20061129, end: 20091115
  2. HYDROCHLOROTHIAZIDE [Concomitant]
     Indication: HYPERTENSION
     Dosage: 25 MG, UNK
     Route: 048
  3. PERCOCET [Concomitant]
     Indication: PELVIC INFECTION
     Dosage: 5/325
     Route: 048
  4. DOXYCYCLINE [Concomitant]
     Indication: PELVIC INFECTION
     Dosage: 100 MG, UNK
     Route: 048

REACTIONS (7)
  - Ectopic pregnancy with contraceptive device [None]
  - Drug ineffective [None]
  - Infertility female [None]
  - Injury [None]
  - Pain [None]
  - Depression [None]
  - Anxiety [None]
